FAERS Safety Report 5574466-8 (Version None)
Quarter: 2007Q4

REPORT INFORMATION
  Report Type: 
  Country: None (occurrence: None)
  Receive Date: 20071221
  Receipt Date: 20071213
  Transmission Date: 20080405
  Serious: Yes (Hospitalization)
  Sender: FDA-Public Use
  Company Number: PIR# 0712037

PATIENT
  Age: 80 Year
  Sex: Male
  Weight: 78 kg

DRUGS (1)
  1. THEOPHYLLINE [Suspect]

REACTIONS (13)
  - BLOOD PRESSURE DIASTOLIC DECREASED [None]
  - BLOOD PRESSURE SYSTOLIC INCREASED [None]
  - DIABETES MELLITUS INADEQUATE CONTROL [None]
  - DIABETIC KETOACIDOSIS [None]
  - DRUG LEVEL INCREASED [None]
  - EMPHYSEMA [None]
  - HAEMOGLOBIN DECREASED [None]
  - HEART RATE INCREASED [None]
  - RESPIRATORY RATE INCREASED [None]
  - SINUS TACHYCARDIA [None]
  - STATUS EPILEPTICUS [None]
  - STUPOR [None]
  - SUBDURAL HAEMATOMA [None]
